FAERS Safety Report 23695898 (Version 1)
Quarter: 2024Q2

REPORT INFORMATION
  Report Type: Report from Study
  Country: US (occurrence: US)
  Receive Date: 20240402
  Receipt Date: 20240402
  Transmission Date: 20240715
  Serious: Yes (Other)
  Sender: FDA-Public Use
  Company Number: US-ABBVIE-5700831

PATIENT
  Sex: Male

DRUGS (1)
  1. HUMIRA [Suspect]
     Active Substance: ADALIMUMAB
     Indication: Prophylaxis
     Dosage: FORM STRENGTH: 40 MG, CF
     Route: 058
     Dates: start: 2022, end: 202403

REACTIONS (3)
  - Retinal tear [Unknown]
  - Cataract [Recovered/Resolved]
  - Noninfective retinitis [Unknown]

NARRATIVE: CASE EVENT DATE: 20220101
